FAERS Safety Report 8914762 (Version 1)
Quarter: 2012Q4

REPORT INFORMATION
  Report Type: Report from Study
  Country: US (occurrence: US)
  Receive Date: 20121119
  Receipt Date: 20121119
  Transmission Date: 20130627
  Serious: Yes (Other)
  Sender: FDA-Public Use
  Company Number: US-ROCHE-1055103

PATIENT
  Sex: Female
  Weight: 62.6 kg

DRUGS (12)
  1. ZELBORAF [Suspect]
     Indication: METASTATIC MALIGNANT MELANOMA
     Route: 048
     Dates: start: 201203
  2. ZELBORAF [Suspect]
     Route: 048
     Dates: start: 201203
  3. DECADRON [Concomitant]
     Route: 048
  4. VICODIN [Concomitant]
     Route: 048
  5. NACL [Concomitant]
     Route: 048
  6. DULCOLAX TABLET [Concomitant]
     Route: 048
  7. ALBUTEROL [Concomitant]
     Route: 065
  8. TAMSULOSIN [Concomitant]
  9. SYNTHROID [Concomitant]
     Route: 048
  10. OMEPRAZOLE [Concomitant]
     Route: 048
  11. ZOFRAN [Concomitant]
     Route: 048
  12. VALPROIC ACID [Concomitant]
     Route: 048

REACTIONS (16)
  - Visual impairment [Not Recovered/Not Resolved]
  - Increased tendency to bruise [Not Recovered/Not Resolved]
  - Arthralgia [Not Recovered/Not Resolved]
  - Skin papilloma [Not Recovered/Not Resolved]
  - Squamous cell carcinoma of skin [Recovered/Resolved]
  - Transaminases increased [Recovered/Resolved]
  - Skin lesion [Not Recovered/Not Resolved]
  - Arthralgia [Not Recovered/Not Resolved]
  - Constipation [Unknown]
  - Cough [Not Recovered/Not Resolved]
  - Rash [Not Recovered/Not Resolved]
  - Mass [Unknown]
  - Melanocytic naevus [Unknown]
  - Rash [Not Recovered/Not Resolved]
  - Rash [Not Recovered/Not Resolved]
  - Rash [Recovered/Resolved]
